FAERS Safety Report 10750584 (Version 1)
Quarter: 2015Q1

REPORT INFORMATION
  Report Type: Spontaneous
  Country: US (occurrence: None)
  Receive Date: 20150123
  Receipt Date: 20150123
  Transmission Date: 20150721
  Serious: Yes (Other)
  Sender: FDA-Public Use
  Company Number: 2014AP005861

PATIENT
  Age: 47 Year
  Sex: Female

DRUGS (3)
  1. QUETIAPINE (QUETIAPINE) [Concomitant]
     Active Substance: QUETIAPINE
  2. METFORMIN [Concomitant]
     Active Substance: METFORMIN HYDROCHLORIDE
  3. LITHIUM CARBONATE (LITHIUM CARBONATE) CAPSULE [Suspect]
     Active Substance: LITHIUM CARBONATE
     Indication: BIPOLAR DISORDER

REACTIONS (2)
  - Nephrogenic diabetes insipidus [None]
  - Toxicity to various agents [None]
